FAERS Safety Report 16070622 (Version 1)
Quarter: 2019Q1

REPORT INFORMATION
  Report Type: Spontaneous
  Country: AU (occurrence: AU)
  Receive Date: 20190314
  Receipt Date: 20190314
  Transmission Date: 20190418
  Serious: Yes (Other)
  Sender: FDA-Public Use
  Company Number: AU-TEVA-2019-AU-1024180

PATIENT
  Sex: Female

DRUGS (4)
  1. BAXTER 0.9% SODIUM CHLORIDE (AUSTR 48519) 4.5G/500ML INJ BP BAG AHB132 [Suspect]
     Active Substance: SODIUM CHLORIDE
     Dosage: 4.5G/500ML INJ BP BAG
     Route: 065
  2. ENDOXAN [Suspect]
     Active Substance: CYCLOPHOSPHAMIDE
     Route: 065
  3. PACLITAXEL INJECTION 100/16.7MG/ML AND 300/50MG/ML [Suspect]
     Active Substance: PACLITAXEL
     Route: 065
  4. DOXORUBICIN [Suspect]
     Active Substance: DOXORUBICIN
     Route: 065

REACTIONS (2)
  - Pneumonitis [Unknown]
  - Respiratory failure [Unknown]
